FAERS Safety Report 11475524 (Version 1)
Quarter: 2015Q3

REPORT INFORMATION
  Report Type: Spontaneous
  Country: US (occurrence: US)
  Receive Date: 20150909
  Receipt Date: 20150909
  Transmission Date: 20151125
  Serious: No
  Sender: FDA-Public Use
  Company Number: US-ACTELION PHARMACEUTICALS US, INC.-A-US2015-118664

PATIENT
  Age: 70 Year
  Sex: Female

DRUGS (11)
  1. ZINC CARBONATE [Concomitant]
     Active Substance: ZINC CARBONATE
  2. FISH OIL [Concomitant]
     Active Substance: FISH OIL
  3. OCUVITE [Concomitant]
     Active Substance: VITAMINS
  4. VALCHLOR [Suspect]
     Active Substance: MECHLORETHAMINE
     Indication: MYCOSIS FUNGOIDES
     Dosage: UNK
     Route: 061
     Dates: start: 201503
  5. MV [Concomitant]
  6. CALCIUM CARBONATE. [Concomitant]
     Active Substance: CALCIUM CARBONATE
  7. MUPIROCIN. [Concomitant]
     Active Substance: MUPIROCIN
  8. VITAMIN D [Concomitant]
     Active Substance: CHOLECALCIFEROL
  9. COENZYME Q10 [Concomitant]
     Active Substance: UBIDECARENONE
  10. ECOTRIN [Concomitant]
     Active Substance: ASPIRIN
  11. MAGNESIUM OXIDE. [Concomitant]
     Active Substance: MAGNESIUM OXIDE

REACTIONS (2)
  - Pain of skin [Unknown]
  - Tooth infection [Recovered/Resolved]
